FAERS Safety Report 5778138-6 (Version None)
Quarter: 2008Q2

REPORT INFORMATION
  Report Type: 
  Country: None (occurrence: None)
  Receive Date: 20080618
  Receipt Date: 20080618
  Transmission Date: 20081010
  Serious: Yes (Hospitalization)
  Sender: FDA-Public Use
  Company Number: None

PATIENT
  Sex: Male
  Weight: 50.3 kg

DRUGS (16)
  1. IRINOTECAN [Suspect]
     Indication: NEUROBLASTOMA
     Dosage: 1.04 MG D1, 4,8,11 IV
     Route: 042
     Dates: start: 20080519
  2. IRINOTECAN [Suspect]
     Indication: NEUROBLASTOMA
     Dosage: 1.04 MG D1, 4,8,11 IV
     Route: 042
     Dates: start: 20080520
  3. IRINOTECAN [Suspect]
     Indication: NEUROBLASTOMA
     Dosage: 1.04 MG D1, 4,8,11 IV
     Route: 042
     Dates: start: 20080521
  4. IRINOTECAN [Suspect]
     Indication: NEUROBLASTOMA
     Dosage: 1.04 MG D1, 4,8,11 IV
     Route: 042
     Dates: start: 20080522
  5. IRINOTECAN [Suspect]
     Indication: NEUROBLASTOMA
     Dosage: 1.04 MG D1, 4,8,11 IV
     Route: 042
     Dates: start: 20080523
  6. BORTEZOMIB [Suspect]
     Indication: NEUROBLASTOMA
     Dosage: 30 MG D1-5 OF 21D CYCL IV
     Route: 042
     Dates: start: 20080519
  7. BORTEZOMIB [Suspect]
     Indication: NEUROBLASTOMA
     Dosage: 30 MG D1-5 OF 21D CYCL IV
     Route: 042
     Dates: start: 20080522
  8. BORTEZOMIB [Suspect]
     Indication: NEUROBLASTOMA
     Dosage: 30 MG D1-5 OF 21D CYCL IV
     Route: 042
     Dates: start: 20080527
  9. BORTEZOMIB [Suspect]
     Indication: NEUROBLASTOMA
     Dosage: 30 MG D1-5 OF 21D CYCL IV
     Route: 042
     Dates: start: 20080530
  10. CEFPODOXIME PROXETIL [Concomitant]
  11. HEPARIN [Concomitant]
  12. IMODIUM [Concomitant]
  13. OXYCODON [Concomitant]
  14. POTASSIUM IODIDE [Concomitant]
  15. PRILOSEC [Concomitant]
  16. ZOFRAN [Concomitant]

REACTIONS (4)
  - BACILLUS INFECTION [None]
  - BLOOD CULTURE POSITIVE [None]
  - DRUG TOXICITY [None]
  - PYREXIA [None]
